FAERS Safety Report 19874664 (Version 8)
Quarter: 2022Q1

REPORT INFORMATION
  Report Type: Report from Study
  Country: CO (occurrence: CO)
  Receive Date: 20210922
  Receipt Date: 20220324
  Transmission Date: 20220423
  Serious: Yes (Hospitalization)
  Sender: FDA-Public Use
  Company Number: CO-NOVARTISPH-NVSC2021CO213542

PATIENT
  Sex: Male
  Weight: 78 kg

DRUGS (2)
  1. COSENTYX [Suspect]
     Active Substance: SECUKINUMAB
     Indication: Psoriasis
     Dosage: 300 MG, QMO
     Route: 058
  2. COSENTYX [Suspect]
     Active Substance: SECUKINUMAB
     Dosage: 300 MG, QMO (FIVE MONTHS AGO)
     Route: 058

REACTIONS (4)
  - Road traffic accident [Unknown]
  - Limb injury [Unknown]
  - Wound [Unknown]
  - Fall [Unknown]
